FAERS Safety Report 24125679 (Version 1)
Quarter: 2024Q3

REPORT INFORMATION
  Report Type: Spontaneous
  Country: US (occurrence: US)
  Receive Date: 20240723
  Receipt Date: 20240723
  Transmission Date: 20241017
  Serious: Yes (Other)
  Sender: KEDRION
  Company Number: US-KEDRION-009537

PATIENT
  Age: 18 Month

DRUGS (1)
  1. HUMAN IMMUNOGLOBULIN G [Suspect]
     Active Substance: HUMAN IMMUNOGLOBULIN G
     Indication: Kawasaki^s disease
     Route: 042

REACTIONS (2)
  - Still^s disease [Unknown]
  - Off label use [Unknown]
